FAERS Safety Report 9406478 (Version 2)
Quarter: 2013Q3

REPORT INFORMATION
  Report Type: Spontaneous
  Country: GB (occurrence: GB)
  Receive Date: 20130718
  Receipt Date: 20130815
  Transmission Date: 20140515
  Serious: Yes (Other)
  Sender: FDA-Public Use
  Company Number: GB-ROCHE-1250011

PATIENT
  Age: 69 Year
  Sex: Female

DRUGS (1)
  1. HERCEPTIN [Suspect]
     Indication: BREAST CANCER
     Dosage: COMPLETED CYCLE 11
     Route: 042
     Dates: start: 20121105

REACTIONS (9)
  - Kidney infection [Unknown]
  - Fatigue [Unknown]
  - Arthralgia [Unknown]
  - Neuropathy peripheral [Unknown]
  - Rhinorrhoea [Unknown]
  - Nail disorder [Unknown]
  - Musculoskeletal stiffness [Unknown]
  - Sleep disorder [Unknown]
  - Diarrhoea [Unknown]
